FAERS Safety Report 11525564 (Version 1)
Quarter: 2015Q3

REPORT INFORMATION
  Report Type: Spontaneous
  Country: US (occurrence: US)
  Receive Date: 20150918
  Receipt Date: 20150918
  Transmission Date: 20151125
  Serious: No
  Sender: FDA-Public Use
  Company Number: US-PERRIGO-14US012591

PATIENT
  Sex: Male

DRUGS (1)
  1. NICOTINE POLACRILEX, COATED MINT FLAVOR [Suspect]
     Active Substance: NICOTINE
     Indication: PRODUCT USED FOR UNKNOWN INDICATION
     Dosage: UNK, UNK
     Route: 002

REACTIONS (1)
  - Drug effect decreased [Unknown]

NARRATIVE: CASE EVENT DATE: 20141223
